FAERS Safety Report 7712783-3 (Version None)
Quarter: 2011Q3

REPORT INFORMATION
  Report Type: 
  Country: None (occurrence: None)
  Receive Date: 20110826
  Receipt Date: 20110818
  Transmission Date: 20111222
  Serious: Yes (Life-Threatening, Hospitalization)
  Sender: FDA-Public Use
  Company Number: US-GLAXOSMITHKLINE-A0942315A

PATIENT
  Age: 42 Year
  Sex: Female
  Weight: 79.1 kg

DRUGS (7)
  1. VISTARIL [Suspect]
     Indication: DEPRESSION
     Route: 048
  2. TRAMADOL HCL [Suspect]
     Indication: PAIN
  3. LAMICTAL [Suspect]
     Indication: DEPRESSION
     Route: 048
  4. TRAZODONE HYDROCHLORIDE [Suspect]
     Indication: DEPRESSION
  5. ZOLOFT [Suspect]
     Indication: DEPRESSION
  6. TRILEPTAL [Suspect]
     Indication: DEPRESSION
  7. ZYPREXA [Suspect]
     Indication: DEPRESSION
     Dates: end: 20110101

REACTIONS (3)
  - SUICIDE ATTEMPT [None]
  - OVERDOSE [None]
  - INJURY [None]
